FAERS Safety Report 17572941 (Version 1)
Quarter: 2020Q1

REPORT INFORMATION
  Report Type: Spontaneous
  Country: SE (occurrence: SE)
  Receive Date: 20200323
  Receipt Date: 20200323
  Transmission Date: 20200409
  Serious: Yes (Other)
  Sender: FDA-Public Use
  Company Number: SE-GALDERMA-SE2020013324

PATIENT
  Age: 65 Year
  Sex: Female

DRUGS (2)
  1. MIRVASO [Suspect]
     Active Substance: BRIMONIDINE TARTRATE
     Indication: ECZEMA
  2. MIRVASO [Suspect]
     Active Substance: BRIMONIDINE TARTRATE
     Indication: ROSACEA
     Dosage: 3 MG/G
     Route: 065

REACTIONS (4)
  - Hypoaesthesia oral [Unknown]
  - Erythema [Unknown]
  - Product use in unapproved indication [Recovered/Resolved]
  - Swelling face [Unknown]

NARRATIVE: CASE EVENT DATE: 20200226
